FAERS Safety Report 5527880-0 (Version None)
Quarter: 2007Q4

REPORT INFORMATION
  Report Type: 
  Country: None (occurrence: None)
  Receive Date: 20071126
  Receipt Date: 20071126
  Transmission Date: 20080405
  Serious: No
  Sender: FDA-Public Use
  Company Number: None

PATIENT
  Age: 57 Year
  Sex: Female
  Weight: 90.7194 kg

DRUGS (1)
  1. LEXAPRO [Suspect]
     Indication: DEPRESSION
     Dosage: 10 MG  DAILY  PO
     Route: 048
     Dates: start: 20070401, end: 20070429

REACTIONS (2)
  - CARDIAC DISORDER [None]
  - ILL-DEFINED DISORDER [None]
